FAERS Safety Report 10155394 (Version 1)
Quarter: 2014Q2

REPORT INFORMATION
  Report Type: Spontaneous
  Country: US (occurrence: US)
  Receive Date: 20140506
  Receipt Date: 20140506
  Transmission Date: 20141212
  Serious: Yes (Hospitalization, Other)
  Sender: FDA-Public Use
  Company Number: CHPA2014US005905

PATIENT
  Age: 74 Year
  Sex: Female

DRUGS (5)
  1. CONTROL STEP 2 14MG [Suspect]
     Indication: SMOKING CESSATION THERAPY
     Dosage: 14 MG, UNK
  2. PRIVATE LABEL STEP 2 14MG ACCT UNKNOWN [Suspect]
     Indication: SMOKING CESSATION THERAPY
     Dosage: 1 DF, QD
     Route: 062
     Dates: start: 201403, end: 201404
  3. CLONAZEPAM [Concomitant]
     Indication: ANXIETY
     Dosage: UNK
     Dates: start: 201401
  4. FUROSEMIDE [Concomitant]
     Indication: BLOOD PRESSURE
     Dosage: 20 MG, UNK
  5. XARELTO [Concomitant]
     Indication: ANTICOAGULANT THERAPY
     Dosage: 20 UNK, UNK

REACTIONS (4)
  - Blood pressure increased [Recovered/Resolved]
  - Panic attack [Recovering/Resolving]
  - Incorrect drug administration duration [Unknown]
  - Pruritus generalised [Recovering/Resolving]
